FAERS Safety Report 23076955 (Version 1)
Quarter: 2023Q4

REPORT INFORMATION
  Report Type: Spontaneous
  Country: FR (occurrence: FR)
  Receive Date: 20231018
  Receipt Date: 20231018
  Transmission Date: 20240110
  Serious: Yes (Other)
  Sender: FDA-Public Use
  Company Number: None

PATIENT
  Age: 83 Year
  Sex: Male
  Weight: 57.299 kg

DRUGS (13)
  1. HYDROXYUREA [Suspect]
     Active Substance: HYDROXYUREA
     Indication: Thrombocytosis
     Dosage: UNTIL JULY, THEN INCREASED DOSAGE IN AUGUST,INCREASED FROM 12 CAPSULES/WEEK TO ALTERNATING BETWEE...
     Route: 048
     Dates: start: 2021
  2. REBLOZYL [Suspect]
     Active Substance: LUSPATERCEPT-AAMT
     Indication: Anaemia
     Route: 042
     Dates: start: 20220920
  3. REBLOZYL [Suspect]
     Active Substance: LUSPATERCEPT-AAMT
     Indication: Anaemia
     Dosage: INCREASED FROM 1MG/KG/3 WEEKS TO 1.33MG/KG/3 WEEKS
     Dates: start: 20230710
  4. REBLOZYL [Suspect]
     Active Substance: LUSPATERCEPT-AAMT
     Indication: Anaemia
     Dosage: INCREASED FROM 1MG/KG/3 WEEKS TO 1.33MG/KG/3 WEEKS
  5. RUXOLITINIB [Concomitant]
     Active Substance: RUXOLITINIB
  6. TRAMADOL [Concomitant]
     Active Substance: TRAMADOL\TRAMADOL HYDROCHLORIDE
  7. ESOMEPRAZOLE [Concomitant]
     Active Substance: ESOMEPRAZOLE
  8. ALLOPURINOL [Concomitant]
     Active Substance: ALLOPURINOL
  9. FINASTERIDE [Concomitant]
     Active Substance: FINASTERIDE
  10. ASPIRIN [Concomitant]
     Active Substance: ASPIRIN
  11. ATORVASTATIN [Concomitant]
     Active Substance: ATORVASTATIN
  12. FLUCONAZOLE [Concomitant]
     Active Substance: FLUCONAZOLE
  13. CHOLECALCIFEROL [Concomitant]
     Active Substance: CHOLECALCIFEROL

REACTIONS (2)
  - Osteonecrosis [Not Recovered/Not Resolved]
  - Hyperleukocytosis [Not Recovered/Not Resolved]

NARRATIVE: CASE EVENT DATE: 20230601
